FAERS Safety Report 5915519-1 (Version None)
Quarter: 2008Q4

REPORT INFORMATION
  Report Type: 
  Country: None (occurrence: None)
  Receive Date: 20081010
  Receipt Date: 20080929
  Transmission Date: 20090506
  Serious: Yes (Disabling)
  Sender: FDA-Public Use
  Company Number: CA-ASTRAZENECA-2008UW19149

PATIENT
  Age: 67 Year
  Sex: Female

DRUGS (2)
  1. ATACAND HCT [Suspect]
     Route: 048
     Dates: end: 20080101
  2. ATACAND [Suspect]
     Route: 048
     Dates: start: 20080619, end: 20080902

REACTIONS (2)
  - ALOPECIA [None]
  - ERYTHEMA [None]
